FAERS Safety Report 21800922 (Version 1)
Quarter: 2022Q4

REPORT INFORMATION
  Report Type: Spontaneous
  Country: DE (occurrence: None)
  Receive Date: 20221230
  Receipt Date: 20221230
  Transmission Date: 20230112
  Serious: Yes (Life-Threatening, Hospitalization, Other)
  Sender: FDA-Public Use
  Company Number: 2022A419041

PATIENT
  Age: 28 Year
  Sex: Male

DRUGS (7)
  1. LEVOMEPROMAZINE [Suspect]
     Active Substance: LEVOMEPROMAZINE
     Indication: Product used for unknown indication
     Route: 065
     Dates: start: 20220517, end: 20220606
  2. RISPERDAL [Suspect]
     Active Substance: RISPERIDONE
     Indication: Schizophrenia
     Dates: start: 20220518, end: 20220606
  3. RISPERDAL [Suspect]
     Active Substance: RISPERIDONE
     Indication: Schizophrenia
     Dates: start: 20220512, end: 20220517
  4. CETIRIZINE [Concomitant]
     Active Substance: CETIRIZINE HYDROCHLORIDE
  5. LORAZEPAM [Concomitant]
     Active Substance: LORAZEPAM
     Dates: start: 20220513
  6. BENPERIDOL [Interacting]
     Active Substance: BENPERIDOL
     Indication: Product used for unknown indication
     Dates: start: 20220523, end: 20220606
  7. QUETIAPINE [Interacting]
     Active Substance: QUETIAPINE
     Indication: Product used for unknown indication
     Route: 065
     Dates: start: 20220606

REACTIONS (8)
  - Chills [Recovering/Resolving]
  - Hyperthermia [Recovering/Resolving]
  - Hyperhidrosis [Recovering/Resolving]
  - Erysipelas [Unknown]
  - Psychomotor skills impaired [Recovering/Resolving]
  - Blood creatine phosphokinase increased [Recovering/Resolving]
  - Tachycardia [Recovering/Resolving]
  - Drug interaction [Unknown]

NARRATIVE: CASE EVENT DATE: 20220601
